FAERS Safety Report 17658510 (Version 2)
Quarter: 2020Q2

REPORT INFORMATION
  Report Type: Report from Study
  Country: US (occurrence: US)
  Receive Date: 20200412
  Receipt Date: 20200416
  Transmission Date: 20200713
  Serious: No
  Sender: FDA-Public Use
  Company Number: US-SA-2020SA046919

PATIENT
  Age: 55 Year
  Sex: Female

DRUGS (26)
  1. CLARITHROMYCIN. [Concomitant]
     Active Substance: CLARITHROMYCIN
  2. FISH OIL [Concomitant]
     Active Substance: FISH OIL
  3. TESTOSTERONE. [Concomitant]
     Active Substance: TESTOSTERONE
  4. ACETAMINOPHEN. [Concomitant]
     Active Substance: ACETAMINOPHEN
  5. OTEZLA [Concomitant]
     Active Substance: APREMILAST
  6. SINGULAIR [Concomitant]
     Active Substance: MONTELUKAST SODIUM
  7. GAMMAGARD S/D [Concomitant]
     Active Substance: HUMAN IMMUNOGLOBULIN G
  8. BUDESONIDE. [Concomitant]
     Active Substance: BUDESONIDE
  9. PANTOPRAZOLE SODIUM. [Concomitant]
     Active Substance: PANTOPRAZOLE SODIUM
  10. TRILIPIX [Concomitant]
     Active Substance: FENOFIBRIC ACID
  11. DUPILUMAB [Suspect]
     Active Substance: DUPILUMAB
     Dosage: UNK, UINK UNK
  12. RANITIDINE HCL [Concomitant]
     Active Substance: RANITIDINE HYDROCHLORIDE
  13. ESTRADIOL. [Concomitant]
     Active Substance: ESTRADIOL
  14. AZELASTINE HCL [Concomitant]
     Active Substance: AZELASTINE HYDROCHLORIDE
     Dosage: SPRAY/PUMP
  15. CYANOCOBALAMINE [Concomitant]
     Active Substance: CYANOCOBALAMIN
  16. PROGESTERONE. [Concomitant]
     Active Substance: PROGESTERONE
  17. DUPILUMAB [Suspect]
     Active Substance: DUPILUMAB
     Dosage: 300 MG, QOW
     Route: 058
  18. EPINEPHRINE. [Concomitant]
     Active Substance: EPINEPHRINE
  19. METHYLPREDNISOLONE. [Concomitant]
     Active Substance: METHYLPREDNISOLONE
  20. IPRATROPIUM BROMIDE. [Concomitant]
     Active Substance: IPRATROPIUM BROMIDE
  21. VITAMIN D3 [Concomitant]
     Active Substance: CHOLECALCIFEROL
  22. DIPHENHYDRAMINE. [Concomitant]
     Active Substance: DIPHENHYDRAMINE
  23. LIDOCAINE. [Concomitant]
     Active Substance: LIDOCAINE
  24. NACL [Concomitant]
     Active Substance: SODIUM CHLORIDE
  25. PREDNISOLONE. [Concomitant]
     Active Substance: PREDNISOLONE
  26. NYSTATIN. [Concomitant]
     Active Substance: NYSTATIN

REACTIONS (3)
  - Influenza [Unknown]
  - Injection site pain [Unknown]
  - Injection site mass [Unknown]
